FAERS Safety Report 6569540-3 (Version None)
Quarter: 2010Q1

REPORT INFORMATION
  Report Type: 
  Country: None (occurrence: None)
  Receive Date: 20100204
  Receipt Date: 20100201
  Transmission Date: 20100710
  Serious: Yes (Hospitalization, Other)
  Sender: FDA-Public Use
  Company Number: US-BRISTOL-MYERS SQUIBB COMPANY-14939094

PATIENT
  Age: 72 Year
  Sex: Female
  Weight: 61 kg

DRUGS (5)
  1. ORENCIA [Suspect]
     Indication: RHEUMATOID ARTHRITIS
     Dosage: DURATION OF THERAPY: 4-5MONTHS. NOV OR DEC-2009
     Dates: start: 20090101
  2. ASACOL [Concomitant]
  3. SULFASALAZINE [Concomitant]
  4. NIFEDIAC [Concomitant]
  5. SYNTHROID [Concomitant]

REACTIONS (1)
  - PANCREATITIS [None]
